FAERS Safety Report 9324775 (Version 1)
Quarter: 2013Q2

REPORT INFORMATION
  Report Type: Spontaneous
  Country: US (occurrence: US)
  Receive Date: 20130603
  Receipt Date: 20130603
  Transmission Date: 20140414
  Serious: No
  Sender: FDA-Public Use
  Company Number: US-009507513-1305USA017751

PATIENT
  Age: 2 Year
  Sex: 0

DRUGS (1)
  1. CLARITIN ORAL SOLUTION [Suspect]
     Indication: HYPERSENSITIVITY
     Dosage: 5 MG, QAM
     Route: 048
     Dates: start: 20130520

REACTIONS (2)
  - Overdose [Recovering/Resolving]
  - No adverse event [Recovering/Resolving]
